FAERS Safety Report 9151085 (Version 2)
Quarter: 2013Q1

REPORT INFORMATION
  Report Type: Spontaneous
  Country: US (occurrence: US)
  Receive Date: 20130308
  Receipt Date: 20130314
  Transmission Date: 20140127
  Serious: Yes (Hospitalization)
  Sender: FDA-Public Use
  Company Number: US-GILEAD-2013-0071274

PATIENT
  Sex: Male

DRUGS (2)
  1. LETAIRIS [Suspect]
     Indication: PULMONARY ARTERIAL HYPERTENSION
     Dosage: 10 MG, QD
     Dates: start: 20120301
  2. LISINOPRIL [Concomitant]
     Indication: ESSENTIAL HYPERTENSION
     Dates: start: 20110924

REACTIONS (1)
  - Duodenal ulcer haemorrhage [Recovered/Resolved]
